FAERS Safety Report 25312938 (Version 4)
Quarter: 2025Q4

REPORT INFORMATION
  Report Type: Spontaneous
  Country: US (occurrence: US)
  Receive Date: 20250514
  Receipt Date: 20251231
  Transmission Date: 20260117
  Serious: No
  Sender: TRAVERE THERAPEUTICS
  Company Number: US-TRAVERE-2025TVT00640

PATIENT
  Age: 16 Year
  Sex: Female

DRUGS (2)
  1. FILSPARI [Suspect]
     Active Substance: SPARSENTAN
     Indication: Nephritic syndrome
     Route: 048
  2. FILSPARI [Suspect]
     Active Substance: SPARSENTAN
     Indication: Focal segmental glomerulosclerosis
     Route: 048

REACTIONS (1)
  - Product use in unapproved indication [Unknown]
